FAERS Safety Report 16565403 (Version 1)
Quarter: 2019Q3

REPORT INFORMATION
  Report Type: Report from Study
  Country: US (occurrence: US)
  Receive Date: 20190712
  Receipt Date: 20190712
  Transmission Date: 20191004
  Serious: Yes (Hospitalization, Other)
  Sender: FDA-Public Use
  Company Number: US-GILEAD-2019-0417873

PATIENT
  Age: 38 Year
  Sex: Male

DRUGS (1)
  1. AZTREONAM LYSINE [Suspect]
     Active Substance: AZTREONAM LYSINE
     Indication: CYSTIC FIBROSIS
     Dosage: 75 MG, TID 28 DAYS ON, 28 DAYS OFF
     Route: 055
     Dates: start: 20180710, end: 20190515

REACTIONS (1)
  - Lung transplant [Recovering/Resolving]

NARRATIVE: CASE EVENT DATE: 20190516
